FAERS Safety Report 23136708 (Version 1)
Quarter: 2023Q4

REPORT INFORMATION
  Report Type: Spontaneous
  Country: AU (occurrence: AU)
  Receive Date: 20231102
  Receipt Date: 20231102
  Transmission Date: 20240110
  Serious: Yes (Hospitalization, Other)
  Sender: FDA-Public Use
  Company Number: AU-002147023-NVSC2023AU192387

PATIENT
  Age: 39 Year
  Sex: Male

DRUGS (4)
  1. MIRTAZAPINE [Suspect]
     Active Substance: MIRTAZAPINE
     Indication: Anxiety
     Dosage: UNK
  2. MIRTAZAPINE [Suspect]
     Active Substance: MIRTAZAPINE
     Indication: Depression
     Dosage: UNK
     Route: 065
     Dates: start: 2019, end: 202203
  3. METHYLPREDNISOLONE [Suspect]
     Active Substance: METHYLPREDNISOLONE
     Indication: Product used for unknown indication
     Dosage: 1 GRAM
     Route: 042
     Dates: start: 2023
  4. PREDNISONE [Suspect]
     Active Substance: PREDNISONE
     Indication: Product used for unknown indication
     Dosage: 25 MILLIGRAM
     Route: 048
     Dates: start: 2023

REACTIONS (8)
  - Aggression [Unknown]
  - Somnolence [Unknown]
  - Cerebral amyloid angiopathy [Unknown]
  - Change in seizure presentation [Unknown]
  - Cognitive disorder [Unknown]
  - Dementia Alzheimer^s type [Unknown]
  - Personality change [Unknown]
  - Speech disorder [Unknown]

NARRATIVE: CASE EVENT DATE: 20221001
